FAERS Safety Report 21040081 (Version 3)
Quarter: 2022Q3

REPORT INFORMATION
  Report Type: Spontaneous
  Country: US (occurrence: US)
  Receive Date: 20220704
  Receipt Date: 20220827
  Transmission Date: 20221027
  Serious: No
  Sender: FDA-Public Use
  Company Number: US-NOVARTISTESTPH-NVSC2022US150666

PATIENT
  Age: 54 Year
  Sex: Female

DRUGS (1)
  1. COMBIPATCH [Suspect]
     Active Substance: ESTRADIOL\NORETHINDRONE ACETATE
     Indication: Menopause
     Dosage: UNK (DOSE:0.05/0.25 MG)
     Route: 062
     Dates: start: 202201

REACTIONS (3)
  - Exposure via direct contact [Recovered/Resolved]
  - Product adhesion issue [Not Recovered/Not Resolved]
  - Device issue [Not Recovered/Not Resolved]

NARRATIVE: CASE EVENT DATE: 20220601
